FAERS Safety Report 6638529-8 (Version None)
Quarter: 2010Q1

REPORT INFORMATION
  Report Type: 
  Country: None (occurrence: None)
  Receive Date: 20100316
  Receipt Date: 20100316
  Transmission Date: 20100710
  Serious: Yes (Hospitalization)
  Sender: FDA-Public Use
  Company Number: None

PATIENT
  Age: 27 Year
  Sex: Female
  Weight: 65.7716 kg

DRUGS (1)
  1. MIRENA [Suspect]

REACTIONS (7)
  - ABDOMINAL PAIN [None]
  - BACK PAIN [None]
  - DEEP VEIN THROMBOSIS [None]
  - DEVICE DISLOCATION [None]
  - HAEMORRHAGE [None]
  - MEDICAL DEVICE COMPLICATION [None]
  - MUSCLE SPASMS [None]
